FAERS Safety Report 13791341 (Version 1)
Quarter: 2017Q3

REPORT INFORMATION
  Report Type: Spontaneous
  Country: US (occurrence: US)
  Receive Date: 20170725
  Receipt Date: 20170725
  Transmission Date: 20171127
  Serious: Yes (Hospitalization)
  Sender: FDA-Public Use
  Company Number: US-INTERPRAG-PM-OCA2017-00644

PATIENT

DRUGS (8)
  1. PREVALITE [Concomitant]
     Active Substance: CHOLESTYRAMINE
  2. GABAPENTIN. [Concomitant]
     Active Substance: GABAPENTIN
  3. METFORMIN [Concomitant]
     Active Substance: METFORMIN HYDROCHLORIDE
  4. RAMIPRIL. [Concomitant]
     Active Substance: RAMIPRIL
  5. ZETIA [Concomitant]
     Active Substance: EZETIMIBE
  6. HYDROXYZINE [Concomitant]
     Active Substance: HYDROXYZINE HYDROCHLORIDE
  7. OCALIVA [Suspect]
     Active Substance: OBETICHOLIC ACID
     Indication: BILIARY CIRRHOSIS PRIMARY
     Dosage: 5 MG, QD DAILY
     Route: 048
     Dates: start: 20170210
  8. SOMA [Concomitant]
     Active Substance: CARISOPRODOL

REACTIONS (6)
  - Laboratory test abnormal [Not Recovered/Not Resolved]
  - Dehydration [Unknown]
  - Exostosis [Unknown]
  - Blood calcium increased [Unknown]
  - Blood sodium decreased [Unknown]
  - Spinal osteoarthritis [Unknown]

NARRATIVE: CASE EVENT DATE: 20170628
